FAERS Safety Report 14172655 (Version 1)
Quarter: 2017Q4

REPORT INFORMATION
  Report Type: Spontaneous
  Country: GB (occurrence: GB)
  Receive Date: 20171109
  Receipt Date: 20171109
  Transmission Date: 20180321
  Serious: Yes (Disabling)
  Sender: FDA-Public Use
  Company Number: GB-CONCORDIA PHARMACEUTICALS INC.-GSH201511-015840

PATIENT
  Age: 77 Year
  Sex: Female
  Weight: 56 kg

DRUGS (4)
  1. ADCAL-D3 [Concomitant]
     Active Substance: CALCIUM CARBONATE\CHOLECALCIFEROL
  2. RAMIPRIL. [Concomitant]
     Active Substance: RAMIPRIL
  3. PREDNISOLONE. [Suspect]
     Active Substance: PREDNISOLONE
     Indication: POLYMYALGIA RHEUMATICA
     Dosage: DECLINING
     Route: 048
     Dates: start: 201507
  4. ALENDRONIC ACID [Concomitant]
     Active Substance: ALENDRONIC ACID

REACTIONS (10)
  - Insomnia [Not Recovered/Not Resolved]
  - Alopecia [Not Recovered/Not Resolved]
  - Impaired healing [Not Recovered/Not Resolved]
  - Hyperhidrosis [Not Recovered/Not Resolved]
  - Contusion [Not Recovered/Not Resolved]
  - Visual impairment [Not Recovered/Not Resolved]
  - Euphoric mood [Not Recovered/Not Resolved]
  - Skin atrophy [Not Recovered/Not Resolved]
  - Anal incontinence [Not Recovered/Not Resolved]
  - Dizziness exertional [Recovering/Resolving]

NARRATIVE: CASE EVENT DATE: 201507
